FAERS Safety Report 14580980 (Version 7)
Quarter: 2018Q2

REPORT INFORMATION
  Report Type: Spontaneous
  Country: US (occurrence: US)
  Receive Date: 20180228
  Receipt Date: 20180622
  Transmission Date: 20180711
  Serious: No
  Sender: FDA-Public Use
  Company Number: US-PFIZER INC-2018059278

PATIENT
  Age: 52 Year
  Sex: Male
  Weight: 93 kg

DRUGS (6)
  1. HYDROCODONE [Concomitant]
     Active Substance: HYDROCODONE
     Dosage: UNK
  2. SUTENT [Suspect]
     Active Substance: SUNITINIB MALATE
     Indication: RENAL CANCER STAGE IV
     Dosage: 50 MG, CYCLIC, (DAILY FOR 2 WEEKS ON/1 WEEK OFF)
     Dates: start: 20180205
  3. SUTENT [Suspect]
     Active Substance: SUNITINIB MALATE
     Dosage: 50 MG, DAILY
  4. CALCIUM [Concomitant]
     Active Substance: CALCIUM
     Dosage: UNK
  5. XGEVA [Concomitant]
     Active Substance: DENOSUMAB
     Dosage: UNK
  6. NAPROXEN. [Concomitant]
     Active Substance: NAPROXEN
     Dosage: UNK

REACTIONS (10)
  - Burning sensation [Unknown]
  - Weight increased [Unknown]
  - Diarrhoea [Unknown]
  - Dyspepsia [Recovering/Resolving]
  - Dizziness [Unknown]
  - Food allergy [Unknown]
  - Decreased activity [Unknown]
  - Fatigue [Unknown]
  - Hyperhidrosis [Unknown]
  - Neoplasm progression [Unknown]

NARRATIVE: CASE EVENT DATE: 2018
